FAERS Safety Report 14831295 (Version 1)
Quarter: 2018Q2

REPORT INFORMATION
  Report Type: Spontaneous
  Country: GB (occurrence: GB)
  Receive Date: 20180501
  Receipt Date: 20180501
  Transmission Date: 20180711
  Serious: Yes (Disabling)
  Sender: FDA-Public Use
  Company Number: GB-TEVA-2018-GB-887078

PATIENT
  Age: 77 Year
  Sex: Female
  Weight: 58 kg

DRUGS (14)
  1. TRAMADOL. [Concomitant]
     Active Substance: TRAMADOL
     Dosage: 1 -2 TO BE TAKEN FOUR TIMES DAILY ...
     Dates: start: 20180125, end: 20180222
  2. SYSTANE (HYPROMELLOSE 2910 (4000 MPA.S)) [Concomitant]
     Active Substance: HYPROMELLOSE 2910 (4000 MPA.S)
     Dosage: USE AS DIRECTED
     Dates: start: 20161220
  3. GABAPENTIN. [Suspect]
     Active Substance: GABAPENTIN
     Route: 002
     Dates: start: 20171226, end: 20180131
  4. EMOLLIN [Concomitant]
     Dosage: USE AS DIRECTED
     Dates: start: 20151116
  5. PANTOPRAZOLE [Concomitant]
     Active Substance: PANTOPRAZOLE
     Dosage: 1 DOSAGE FORMS DAILY;
     Dates: start: 20170131
  6. QUININE [Concomitant]
     Active Substance: QUININE
     Dosage: 1 DOSAGE FORMS DAILY;
     Dates: start: 20171221, end: 20171222
  7. EPADERM [Concomitant]
     Active Substance: MINERAL OIL\PETROLATUM\WAX, EMULSIFYING
     Dosage: APPLY AS MOISTURISER
     Dates: start: 20160126
  8. LEVOTHYROXINE. [Concomitant]
     Active Substance: LEVOTHYROXINE
     Dosage: 1 DOSAGE FORMS DAILY;
     Dates: start: 20171025
  9. ESTRADIOL. [Concomitant]
     Active Substance: ESTRADIOL
     Dosage: USE AS DIRECTED
     Dates: start: 20170131
  10. MOMETASONE [Concomitant]
     Active Substance: MOMETASONE
     Dosage: 2 DOSAGE FORMS DAILY;
     Dates: start: 20171025
  11. NORMACOL [Concomitant]
     Active Substance: HERBALS\KARAYA GUM
     Dosage: 1-2 DAILY
     Dates: start: 20160126
  12. GABAPENTIN. [Suspect]
     Active Substance: GABAPENTIN
     Dates: start: 20170808
  13. DICLOFENAC DIETHYLAMINE [Concomitant]
     Active Substance: DICLOFENAC DIETHYLAMINE
     Dosage: 3 DOSAGE FORMS DAILY;
     Dates: start: 20170208
  14. DERMOL [Concomitant]
     Active Substance: BENZALKONIUM CHLORIDE\CHLORHEXIDINE HYDROCHLORIDE\ISOPROPYL MYRISTATE\PARAFFIN
     Dosage: USE AS SOAP AND MOISTURISER
     Dates: start: 20151116

REACTIONS (1)
  - Somnambulism [Recovered/Resolved]

NARRATIVE: CASE EVENT DATE: 20171226
